FAERS Safety Report 6110331-5 (Version None)
Quarter: 2009Q1

REPORT INFORMATION
  Report Type: 
  Country: None (occurrence: None)
  Receive Date: 20090310
  Receipt Date: 20090226
  Transmission Date: 20090719
  Serious: Yes (Other)
  Sender: FDA-Public Use
  Company Number: US-PFIZER INC-2008154402

PATIENT
  Sex: Female
  Weight: 71.655 kg

DRUGS (3)
  1. XALATAN [Suspect]
     Indication: INTRAOCULAR PRESSURE TEST
     Dosage: 2 GTT, 1X/DAY
     Dates: start: 20080501
  2. COSOPT [Concomitant]
     Dosage: UNK
  3. NEVANAC [Concomitant]
     Dosage: UNK

REACTIONS (2)
  - BLOOD PRESSURE INCREASED [None]
  - EYE INJURY [None]
